FAERS Safety Report 9973704 (Version 1)
Quarter: 2014Q1

REPORT INFORMATION
  Report Type: Spontaneous
  Country: US (occurrence: US)
  Receive Date: 20140306
  Receipt Date: 20140306
  Transmission Date: 20141002
  Serious: Yes (Other)
  Sender: FDA-Public Use
  Company Number: US-BAYER-2014-031471

PATIENT
  Sex: Female

DRUGS (2)
  1. AVELOX [Suspect]
     Indication: SINUSITIS
  2. AVELOX [Suspect]
     Indication: BRONCHITIS

REACTIONS (8)
  - Feeling abnormal [None]
  - Vomiting projectile [None]
  - Dizziness [None]
  - Hallucination [None]
  - Panic attack [None]
  - Dehydration [None]
  - Nausea [None]
  - Dry mouth [None]
